FAERS Safety Report 6446733-7 (Version None)
Quarter: 2009Q4

REPORT INFORMATION
  Report Type: 
  Country: None (occurrence: None)
  Receive Date: 20091119
  Receipt Date: 20091110
  Transmission Date: 20100525
  Serious: Yes (Other)
  Sender: FDA-Public Use
  Company Number: US-JNJFOC-20091103675

PATIENT
  Age: 20 Month
  Sex: Female
  Weight: 11.34 kg

DRUGS (4)
  1. TYLENOL (CAPLET) [Suspect]
     Route: 048
  2. TYLENOL (CAPLET) [Suspect]
     Indication: IMMUNISATION
     Route: 048
  3. INFLUENZA VACCINE [Concomitant]
  4. VACCINATION [Concomitant]

REACTIONS (3)
  - IRRITABILITY [None]
  - TRANSMISSION OF AN INFECTIOUS AGENT VIA A MEDICINAL PRODUCT [None]
  - VOMITING [None]
